FAERS Safety Report 8603416-2 (Version None)
Quarter: 2012Q3

REPORT INFORMATION
  Report Type: 
  Country: None (occurrence: None)
  Receive Date: 20120817
  Receipt Date: 20120810
  Transmission Date: 20120928
  Serious: Yes (Hospitalization)
  Sender: FDA-Public Use
  Company Number: BR-ABBOTT-12P-020-0967334-00

PATIENT
  Sex: Female
  Weight: 67 kg

DRUGS (4)
  1. HUMIRA [Suspect]
     Dosage: WEEK: 2; ONCE EVERY 14 DAYS
     Route: 058
  2. HUMIRA [Suspect]
     Indication: PSORIASIS
     Dosage: WEEK: 0
     Route: 058
     Dates: start: 20120427
  3. PREDNISONE TAB [Concomitant]
     Indication: PSORIASIS
     Route: 048
     Dates: start: 20100101
  4. MYCOPHENOLATE MOFETIL [Concomitant]
     Indication: SKIN LESION
     Route: 048
     Dates: start: 20120601

REACTIONS (1)
  - SKIN LESION [None]
